FAERS Safety Report 4594750-4 (Version None)
Quarter: 2005Q1

REPORT INFORMATION
  Report Type: 
  Country: None (occurrence: None)
  Receive Date: 20050301
  Receipt Date: 20050131
  Transmission Date: 20050727
  Serious: Yes (Death, Disabling)
  Sender: FDA-Public Use
  Company Number: DE-BRISTOL-MYERS SQUIBB COMPANY-12843728

PATIENT
  Age: 64 Year
  Sex: Male
  Weight: 80 kg

DRUGS (9)
  1. CARBOPLATIN [Suspect]
     Indication: NON-SMALL CELL LUNG CANCER
     Dates: start: 20041222, end: 20041222
  2. GEMZAR [Suspect]
     Indication: NON-SMALL CELL LUNG CANCER
     Dates: start: 20041222, end: 20041222
  3. FEVARIN [Concomitant]
     Indication: OBSESSIVE-COMPULSIVE DISORDER
  4. RISPERDAL [Concomitant]
     Indication: OBSESSIVE-COMPULSIVE DISORDER
  5. SPIRONOLACTONE [Concomitant]
     Indication: FILARIASIS
     Route: 048
     Dates: start: 20050103
  6. FUROSEMIDE [Concomitant]
     Indication: FILARIASIS
     Route: 048
     Dates: start: 20050103
  7. PREDNISOLONE [Concomitant]
     Indication: FILARIASIS
     Dates: start: 20041224
  8. ZOFRAN [Concomitant]
     Indication: PREMEDICATION
     Dosage: - AND ORAL
     Route: 042
     Dates: start: 20041222, end: 20041222
  9. ZOFRAN [Concomitant]
     Route: 048
     Dates: start: 20041222, end: 20041222

REACTIONS (3)
  - BUDD-CHIARI SYNDROME [None]
  - GASTROINTESTINAL HAEMORRHAGE [None]
  - HEPATIC CIRRHOSIS [None]
